FAERS Safety Report 11055195 (Version 1)
Quarter: 2015Q2

REPORT INFORMATION
  Report Type: Spontaneous
  Country: US (occurrence: None)
  Receive Date: 20150421
  Receipt Date: 20150421
  Transmission Date: 20150821
  Serious: Yes (Hospitalization)
  Sender: FDA-Public Use
  Company Number: None

PATIENT
  Age: 66 Year
  Sex: Female
  Weight: 65.77 kg

DRUGS (4)
  1. ZOLPIDEM [Concomitant]
     Active Substance: ZOLPIDEM\ZOLPIDEM TARTRATE
  2. NEXIUM [Concomitant]
     Active Substance: ESOMEPRAZOLE MAGNESIUM
  3. TRAMADOL [Suspect]
     Active Substance: TRAMADOL
     Indication: ROTATOR CUFF SYNDROME
     Dosage: 2 PILLS TWICE DAILY TAKEN BY MOUTH
     Route: 048
     Dates: end: 20150410
  4. ESTROVEN [Concomitant]
     Active Substance: DIETARY SUPPLEMENT

REACTIONS (11)
  - Chills [None]
  - Insomnia [None]
  - Loss of consciousness [None]
  - Diarrhoea [None]
  - Dizziness [None]
  - Road traffic accident [None]
  - Drug withdrawal syndrome [None]
  - Depression [None]
  - Crying [None]
  - Incoherent [None]
  - Hyperhidrosis [None]

NARRATIVE: CASE EVENT DATE: 20150410
